FAERS Safety Report 11052590 (Version 2)
Quarter: 2015Q2

REPORT INFORMATION
  Report Type: Spontaneous
  Country: JP (occurrence: JP)
  Receive Date: 20150421
  Receipt Date: 20150430
  Transmission Date: 20150821
  Serious: Yes (Hospitalization)
  Sender: FDA-Public Use
  Company Number: JP-BAYER-2015-133175

PATIENT

DRUGS (1)
  1. BAYASPIRIN [Suspect]
     Active Substance: ASPIRIN
     Indication: POLYCYTHAEMIA VERA
     Dosage: 100 MG, UNK
     Route: 048
     Dates: start: 201206

REACTIONS (5)
  - Compartment syndrome [None]
  - Peripheral swelling [None]
  - Pain in extremity [None]
  - Gait disturbance [None]
  - Muscle haemorrhage [None]

NARRATIVE: CASE EVENT DATE: 20130603
